FAERS Safety Report 10536547 (Version 2)
Quarter: 2014Q4

REPORT INFORMATION
  Report Type: Spontaneous
  Country: US (occurrence: US)
  Receive Date: 20141022
  Receipt Date: 20141022
  Transmission Date: 20150529
  Serious: No
  Sender: FDA-Public Use
  Company Number: US-RECKITT BENCKISER PHARMACEUTICAL, INC-RB-66534-2014

PATIENT

DRUGS (3)
  1. SUBOXONE [Suspect]
     Active Substance: BUPRENORPHINE HYDROCHLORIDE\NALOXONE HYDROCHLORIDE
     Dosage: SUBOXONE FILM; FURTHER DOSING DETAILS UNKNOWN
     Route: 060
  2. SUBOXONE [Suspect]
     Active Substance: BUPRENORPHINE HYDROCHLORIDE\NALOXONE HYDROCHLORIDE
     Indication: DRUG DEPENDENCE
     Dosage: SUBOXONE FILM; PRESCRIBED UP TO 16 MG DAILY, CUT THE FILM, TOOK VARIOUS DOSES, TAKING PIECES
     Route: 060
  3. SUBOXONE [Suspect]
     Active Substance: BUPRENORPHINE HYDROCHLORIDE\NALOXONE HYDROCHLORIDE
     Dosage: SUBOXONE FILM; FURTHER DOSING DETAILS UNKNOWN
     Route: 060
     Dates: start: 201402

REACTIONS (6)
  - Drug ineffective [Not Recovered/Not Resolved]
  - Therapeutic response unexpected [Recovered/Resolved]
  - Therapeutic product ineffective for unapproved indication [Not Recovered/Not Resolved]
  - Drug effect increased [Not Recovered/Not Resolved]
  - Wrong technique in drug usage process [Unknown]
  - Anxiety [Not Recovered/Not Resolved]
